FAERS Safety Report 4460503-0 (Version None)
Quarter: 2004Q3

REPORT INFORMATION
  Report Type: 
  Country: None (occurrence: None)
  Receive Date: 20040923
  Receipt Date: 20040923
  Transmission Date: 20050211
  Serious: No
  Sender: FDA-Public Use
  Company Number: None

PATIENT
  Age: 60 Year
  Sex: Female
  Weight: 134.5369 kg

DRUGS (1)
  1. NESIRITIDE  1.5MG/ 250ML [Suspect]
     Indication: CARDIAC FAILURE CONGESTIVE
     Dosage: 0.01MG/KG/M   INTRAVENOUS
     Route: 042
     Dates: start: 20040120, end: 20040122

REACTIONS (2)
  - HYPOTENSION [None]
  - INFUSION RELATED REACTION [None]
